FAERS Safety Report 12624092 (Version 3)
Quarter: 2017Q1

REPORT INFORMATION
  Report Type: Spontaneous
  Country: US (occurrence: US)
  Receive Date: 20160804
  Receipt Date: 20170324
  Transmission Date: 20170428
  Serious: Yes (Hospitalization, Other)
  Sender: FDA-Public Use
  Company Number: US-BRISTOL-MYERS SQUIBB COMPANY-BMS-2016-061752

PATIENT
  Age: 65 Year
  Sex: Male

DRUGS (3)
  1. NULOJIX [Suspect]
     Active Substance: BELATACEPT
     Indication: RENAL TRANSPLANT
     Dosage: 925 MG, UNK
     Route: 042
     Dates: start: 20160428
  2. THYMOGLOBULIN [Concomitant]
     Active Substance: LAPINE T-LYMPHOCYTE IMMUNE GLOBULIN
     Indication: RENAL TRANSPLANT
     Dosage: 150 MG, UNK
     Route: 042
  3. NULOJIX [Suspect]
     Active Substance: BELATACEPT
     Indication: KIDNEY TRANSPLANT REJECTION
     Dosage: 925 MG, UNK
     Route: 042
     Dates: start: 20160502

REACTIONS (7)
  - Atrial fibrillation [Unknown]
  - Haemofiltration [Unknown]
  - Procedural hypotension [Unknown]
  - Removal of renal transplant [Unknown]
  - Renal vein thrombosis [Unknown]
  - Off label use [Unknown]
  - Graft loss [Unknown]
